FAERS Safety Report 19447425 (Version 1)
Quarter: 2021Q2

REPORT INFORMATION
  Report Type: Spontaneous
  Country: IT (occurrence: IT)
  Receive Date: 20210622
  Receipt Date: 20210622
  Transmission Date: 20210717
  Serious: Yes (Hospitalization, Other)
  Sender: FDA-Public Use
  Company Number: IT-TEVA-2021-IT-1924461

PATIENT
  Age: 21 Year
  Sex: Female

DRUGS (12)
  1. TRAZODONE [Suspect]
     Active Substance: TRAZODONE HYDROCHLORIDE
     Indication: AFFECTIVE DISORDER
     Dosage: 30 MILLIGRAM DAILY;
     Route: 065
  2. ACICLOVIR [Suspect]
     Active Substance: ACYCLOVIR
     Indication: PRODUCT USED FOR UNKNOWN INDICATION
     Route: 048
  3. ACICLOVIR [Suspect]
     Active Substance: ACYCLOVIR
     Dosage: FIVES TIME PER DAY
     Route: 061
  4. LAMOTRIGINE. [Suspect]
     Active Substance: LAMOTRIGINE
     Indication: AFFECTIVE DISORDER
     Route: 065
  5. FLURAZEPAM [Suspect]
     Active Substance: FLURAZEPAM HYDROCHLORIDE
     Indication: AFFECTIVE DISORDER
     Dosage: 15 MILLIGRAM DAILY;
     Route: 065
  6. OXATOMIDE [Suspect]
     Active Substance: OXATOMIDE
     Indication: PRURITUS
     Route: 065
  7. DEXAMETHASONE/NETILMICIN [Suspect]
     Active Substance: DEXAMETHASONE\NETILMICIN
     Indication: PRODUCT USED FOR UNKNOWN INDICATION
     Route: 065
  8. NYSTATIN. [Suspect]
     Active Substance: NYSTATIN
     Indication: PRODUCT USED FOR UNKNOWN INDICATION
     Route: 067
  9. PREDNISONE. [Suspect]
     Active Substance: PREDNISONE
     Indication: PRODUCT USED FOR UNKNOWN INDICATION
     Route: 065
  10. ACICLOVIR [Suspect]
     Active Substance: ACYCLOVIR
     Indication: PRODUCT USED FOR UNKNOWN INDICATION
     Route: 042
  11. ACICLOVIR [Suspect]
     Active Substance: ACYCLOVIR
     Indication: PRODUCT USED FOR UNKNOWN INDICATION
  12. MUPIROCIN. [Suspect]
     Active Substance: MUPIROCIN
     Indication: PRODUCT USED FOR UNKNOWN INDICATION
     Route: 061

REACTIONS (5)
  - Rash [Recovering/Resolving]
  - Abortion induced [Unknown]
  - Maternal exposure during pregnancy [Unknown]
  - Stevens-Johnson syndrome [Recovering/Resolving]
  - Herpes simplex [Recovering/Resolving]
